FAERS Safety Report 23394227 (Version 1)
Quarter: 2024Q1

REPORT INFORMATION
  Report Type: Spontaneous
  Country: US (occurrence: US)
  Receive Date: 20240111
  Receipt Date: 20240111
  Transmission Date: 20240410
  Serious: No
  Sender: FDA-Public Use
  Company Number: US-JNJFOC-20231276691

PATIENT
  Sex: Male

DRUGS (1)
  1. PEPCID AC [Suspect]
     Active Substance: FAMOTIDINE
     Indication: Prophylaxis
     Dosage: ATE FIRST AND THEN I TOOK ONE
     Route: 048

REACTIONS (1)
  - Inappropriate schedule of product administration [Unknown]
